FAERS Safety Report 11520213 (Version 1)
Quarter: 2015Q3

REPORT INFORMATION
  Report Type: Spontaneous
  Country: US (occurrence: US)
  Receive Date: 20150918
  Receipt Date: 20150918
  Transmission Date: 20151125
  Serious: No
  Sender: FDA-Public Use
  Company Number: US-RB-074036-15

PATIENT

DRUGS (1)
  1. MUCINEX MAXIMUM STRENGTH [Suspect]
     Active Substance: GUAIFENESIN
     Indication: PRODUCT USED FOR UNKNOWN INDICATION
     Dosage: 1200MG. LAST TOOK ON 07-JAN-2015 AT 7:30AM. UNSPECIFIED DOSE EVERY 12 HOURS (AMOUNT USED: 6),BID
     Route: 065
     Dates: start: 20150104

REACTIONS (1)
  - Product solubility abnormal [Unknown]
